FAERS Safety Report 19359626 (Version 15)
Quarter: 2021Q3

REPORT INFORMATION
  Report Type: Report from Study
  Country: JP (occurrence: JP)
  Receive Date: 20210602
  Receipt Date: 20210827
  Transmission Date: 20211014
  Serious: Yes (Hospitalization)
  Sender: FDA-Public Use
  Company Number: JP-EISAI MEDICAL RESEARCH-EC-2021-093411

PATIENT
  Age: 71 Year
  Sex: Male
  Weight: 50 kg

DRUGS (19)
  1. LENVATINIB [Suspect]
     Active Substance: LENVATINIB
     Indication: COLORECTAL CANCER
     Route: 048
     Dates: start: 20210518, end: 20210520
  2. LENVATINIB [Suspect]
     Active Substance: LENVATINIB
     Route: 048
     Dates: start: 20210524, end: 20210528
  3. TALION [BEPOTASTINE BESILATE] [Concomitant]
     Active Substance: BEPOTASTINE BESYLATE
     Dates: start: 201605, end: 20210713
  4. TAKECAB [Concomitant]
     Active Substance: VONOPRAZAN FUMARATE
     Dates: start: 20190807, end: 20210712
  5. XARELTO [Concomitant]
     Active Substance: RIVAROXABAN
     Dates: start: 20210115
  6. PEMBROLIZUMAB. [Suspect]
     Active Substance: PEMBROLIZUMAB
     Indication: COLORECTAL CANCER
     Route: 041
     Dates: start: 20210518, end: 20210518
  7. MIYA?BM [Concomitant]
     Active Substance: CLOSTRIDIUM BUTYRICUM SPORES STRAIN M-55
     Dates: start: 20190807, end: 20210713
  8. AZUNOL [GUAIAZULENE] [Concomitant]
     Active Substance: GUAIAZULENE
     Dates: start: 20210427, end: 20210727
  9. LENVATINIB [Suspect]
     Active Substance: LENVATINIB
     Dosage: STARTING DOSE AT 14 MILLIGRAM, FLUCTUATED DOSAGE
     Route: 048
     Dates: start: 20210604, end: 20210720
  10. NERIPROCT [Concomitant]
     Active Substance: DIFLUCORTOLONE VALERATE\LIDOCAINE
     Dates: start: 20200919, end: 20210727
  11. FERROUS SODIUM CITRATE [Concomitant]
     Active Substance: SODIUM FERROUS CITRATE
     Dates: start: 20210517, end: 20210629
  12. ROSUVASTATINE ARROW [Concomitant]
     Active Substance: ROSUVASTATIN CALCIUM
     Dates: start: 201605, end: 20210713
  13. MAGMITT [Concomitant]
     Active Substance: MAGNESIUM OXIDE
     Dates: start: 20190903, end: 20210606
  14. MOSAPRIDE CITRATE [Concomitant]
     Active Substance: MOSAPRIDE CITRATE
     Dates: start: 20190807, end: 20210713
  15. TERAMURO [Concomitant]
     Dates: start: 201605, end: 20210528
  16. SATOSALBE [Concomitant]
     Active Substance: ZINC OXIDE
     Dates: start: 20210517, end: 20210727
  17. PEMBROLIZUMAB. [Suspect]
     Active Substance: PEMBROLIZUMAB
     Route: 041
     Dates: start: 20210629, end: 20210629
  18. METOANA [Concomitant]
     Dates: start: 201605, end: 20210528
  19. LOXONIN [Concomitant]
     Active Substance: LOXOPROFEN SODIUM
     Dates: start: 20190612

REACTIONS (2)
  - Hyperammonaemia [Recovered/Resolved]
  - Cognitive disorder [Recovered/Resolved]

NARRATIVE: CASE EVENT DATE: 20210520
